FAERS Safety Report 16903653 (Version 1)
Quarter: 2019Q4

REPORT INFORMATION
  Report Type: Spontaneous
  Country: US (occurrence: US)
  Receive Date: 20191009
  Receipt Date: 20191009
  Transmission Date: 20200122
  Serious: Yes (Disabling)
  Sender: FDA-Public Use
  Company Number: None

PATIENT
  Age: 58 Year
  Sex: Female
  Weight: 102.6 kg

DRUGS (8)
  1. LOSARTAN AND HYDROCHLOROTHIAZIDE [Concomitant]
     Active Substance: HYDROCHLOROTHIAZIDE\LOSARTAN POTASSIUM
  2. EFFEXOR [Concomitant]
     Active Substance: VENLAFAXINE HYDROCHLORIDE
  3. VITAMIN E [Concomitant]
     Active Substance: .ALPHA.-TOCOPHEROL
  4. MULTI VITAMIN [Concomitant]
     Active Substance: VITAMINS
  5. CALCIUM [Concomitant]
     Active Substance: CALCIUM
  6. POTASSIUM [Concomitant]
     Active Substance: POTASSIUM
  7. BABY ASPIRIN [Concomitant]
     Active Substance: ASPIRIN
  8. LEVOFLOXACIN 750 MG TABLETS [Suspect]
     Active Substance: LEVOFLOXACIN
     Indication: INFECTION
     Dosage: ?          QUANTITY:1 TABLET(S);?
     Route: 048
     Dates: start: 20190924, end: 20190924

REACTIONS (6)
  - Pain [None]
  - Insomnia [None]
  - Myalgia [None]
  - Therapy cessation [None]
  - Spinal disorder [None]
  - Arthralgia [None]

NARRATIVE: CASE EVENT DATE: 20190924
